FAERS Safety Report 6704633-9 (Version None)
Quarter: 2010Q2

REPORT INFORMATION
  Report Type: 
  Country: None (occurrence: None)
  Receive Date: 20100430
  Receipt Date: 20100420
  Transmission Date: 20101027
  Serious: Yes (Life-Threatening, Hospitalization)
  Sender: FDA-Public Use
  Company Number: US-JNJFOC-20100109375

PATIENT
  Sex: Female
  Weight: 117.03 kg

DRUGS (6)
  1. NUCYNTA [Suspect]
     Indication: BACK PAIN
     Dosage: 1-2 TABLETS ONCE A DAY
     Route: 048
  2. EFFEXOR [Concomitant]
     Indication: DRUG USE FOR UNKNOWN INDICATION
     Route: 065
  3. NEURONTIN [Concomitant]
     Route: 048
  4. HYDROCODONE BITARTRATE [Concomitant]
     Indication: PAIN
     Route: 048
  5. AMBIEN [Concomitant]
     Route: 048
  6. VICODIN [Concomitant]
     Route: 048

REACTIONS (4)
  - BLOOD POTASSIUM DECREASED [None]
  - CARDIAC ARREST [None]
  - SYNCOPE [None]
  - VENTRICULAR TACHYCARDIA [None]
